FAERS Safety Report 8364209-7 (Version None)
Quarter: 2012Q2

REPORT INFORMATION
  Report Type: 
  Country: None (occurrence: None)
  Receive Date: 20120516
  Receipt Date: 20120508
  Transmission Date: 20120825
  Serious: Yes (Other)
  Sender: FDA-Public Use
  Company Number: US-PFIZER INC-2012077136

PATIENT
  Sex: Male
  Weight: 94.5 kg

DRUGS (12)
  1. ELIGARD [Concomitant]
     Dosage: 30 MG, EVERY 4 MONTHS
     Route: 058
  2. ACETYLSALICYLIC ACID [Concomitant]
     Indication: ATRIAL FIBRILLATION
     Dosage: 81 MG, DAILY
  3. LUPRON [Concomitant]
     Indication: PROSTATE CANCER
     Dosage: 1 INJECTION, EVERY 4 MONTHS
  4. DIOVAN [Concomitant]
     Dosage: UNK
  5. SUTENT [Suspect]
     Indication: PALLIATIVE CARE
  6. DIPYRIDAMOLE [Concomitant]
     Indication: ATRIAL FIBRILLATION
     Dosage: 25 MG, 2X/DAY
  7. GABAPENTIN [Concomitant]
     Indication: DIABETIC NEUROPATHY
     Dosage: 300 MG, 1X/DAY AT BEDTIME
  8. DIGOXIN [Concomitant]
     Dosage: UNK
  9. SUTENT [Suspect]
     Indication: METASTATIC RENAL CELL CARCINOMA
     Dosage: 50 MG (1 CAPSULE), 1X/DAY, 4 WEEKS ON/2 WEEKS OFF
     Dates: start: 20120317, end: 20120408
  10. GLYBURIDE [Concomitant]
     Indication: TYPE 2 DIABETES MELLITUS
     Dosage: UNK
  11. METFORMIN [Concomitant]
     Indication: TYPE 2 DIABETES MELLITUS
     Dosage: UNK
  12. CASODEX [Concomitant]
     Dosage: UNK

REACTIONS (22)
  - BONE MARROW FAILURE [None]
  - HYPERGLYCAEMIA [None]
  - HAEMATURIA [None]
  - PAIN [None]
  - ATAXIA [None]
  - DIARRHOEA [None]
  - FEELING ABNORMAL [None]
  - HOT FLUSH [None]
  - THROMBOCYTOPENIA [None]
  - APHASIA [None]
  - FATIGUE [None]
  - LEUKOPENIA [None]
  - DECREASED APPETITE [None]
  - MUSCULAR WEAKNESS [None]
  - BLOOD PRESSURE INCREASED [None]
  - ARTHROPATHY [None]
  - URINARY TRACT INFECTION [None]
  - ASTHENIA [None]
  - LETHARGY [None]
  - NEUROPATHY PERIPHERAL [None]
  - BLOOD GLUCOSE DECREASED [None]
  - PENILE HAEMORRHAGE [None]
